FAERS Safety Report 15904141 (Version 1)
Quarter: 2019Q1

REPORT INFORMATION
  Report Type: Spontaneous
  Country: US (occurrence: US)
  Receive Date: 20190204
  Receipt Date: 20190204
  Transmission Date: 20190417
  Serious: Yes (Hospitalization, Other)
  Sender: FDA-Public Use
  Company Number: US-COLGATE PALMOLIVE COMPANY-20190100282

PATIENT
  Sex: Female

DRUGS (1)
  1. COLGATE TOTAL ADVANCED CLEAN [Suspect]
     Active Substance: SODIUM FLUORIDE\TRICLOSAN
     Dosage: UNKNOW DOSE

REACTIONS (13)
  - Bacterial infection [Recovered/Resolved]
  - Enterocolitis [Unknown]
  - Glossitis [Unknown]
  - Oral infection [Not Recovered/Not Resolved]
  - Viral infection [Recovered/Resolved]
  - Kidney infection [Unknown]
  - Ill-defined disorder [Unknown]
  - Sepsis [Unknown]
  - Pneumonia [Unknown]
  - Emotional distress [Unknown]
  - Immune system disorder [Unknown]
  - Diarrhoea [Unknown]
  - Pain [Not Recovered/Not Resolved]

NARRATIVE: CASE EVENT DATE: 20181127
